FAERS Safety Report 7866147-2 (Version None)
Quarter: 2011Q4

REPORT INFORMATION
  Report Type: 
  Country: None (occurrence: None)
  Receive Date: 20111028
  Receipt Date: 20110502
  Transmission Date: 20120403
  Serious: No
  Sender: FDA-Public Use
  Company Number: US-GLAXOSMITHKLINE-A0925336A

PATIENT
  Age: 59 Year
  Sex: Female

DRUGS (14)
  1. DILANTIN [Concomitant]
  2. NARDIL [Concomitant]
  3. DOXYCYCLINE [Concomitant]
  4. TESSALON [Concomitant]
  5. NEXIUM [Concomitant]
  6. SPIRIVA [Concomitant]
  7. TYLENOL-500 [Concomitant]
  8. ADVAIR DISKUS 100/50 [Suspect]
     Indication: CHRONIC OBSTRUCTIVE PULMONARY DISEASE
     Dosage: 1PUFF PER DAY
     Route: 055
     Dates: start: 20110418
  9. VENTOLIN [Concomitant]
  10. PREDNISONE [Concomitant]
  11. ALBUTEROL [Concomitant]
  12. OXYGEN [Concomitant]
  13. ATIVAN [Concomitant]
  14. CARDIZEM CD [Concomitant]

REACTIONS (4)
  - MUSCULOSKELETAL STIFFNESS [None]
  - TREMOR [None]
  - ORAL DISORDER [None]
  - HEADACHE [None]
